FAERS Safety Report 9554206 (Version 1)
Quarter: 2013Q3

REPORT INFORMATION
  Report Type: Spontaneous
  Country: FR (occurrence: FR)
  Receive Date: 20130925
  Receipt Date: 20130925
  Transmission Date: 20140515
  Serious: Yes (Other)
  Sender: FDA-Public Use
  Company Number: FR-TEVA-433933ISR

PATIENT
  Age: 84 Year
  Sex: Male

DRUGS (4)
  1. PRAMIPEXOLE [Suspect]
     Indication: RESTLESS LEGS SYNDROME
     Dosage: 0.7MG
     Route: 065
  2. MOCLOBEMIDE [Suspect]
     Indication: MAJOR DEPRESSION
     Route: 065
  3. FENTANYL [Concomitant]
     Indication: RESTLESS LEGS SYNDROME
     Dosage: OVERNIGHT
     Route: 065
  4. CITALOPRAM [Concomitant]
     Indication: MAJOR DEPRESSION
     Route: 065

REACTIONS (3)
  - Major depression [Recovering/Resolving]
  - Restless legs syndrome [Unknown]
  - Impulse-control disorder [Unknown]
